FAERS Safety Report 8395736-4 (Version None)
Quarter: 2012Q2

REPORT INFORMATION
  Report Type: 
  Country: None (occurrence: None)
  Receive Date: 20120530
  Receipt Date: 20111108
  Transmission Date: 20120825
  Serious: Yes (Death, Other)
  Sender: FDA-Public Use
  Company Number: DE-CELGENEUS-062-21880-11111382

PATIENT
  Age: 60 Year

DRUGS (6)
  1. REVLIMID [Suspect]
     Indication: MULTIPLE MYELOMA
     Route: 048
  2. DOXORUBICIN HCL [Suspect]
     Indication: AMYLOIDOSIS
     Route: 065
  3. HIGH DOSE MELPHALAN [Concomitant]
     Indication: AMYLOIDOSIS
     Route: 065
  4. BORTEZOMIB [Concomitant]
     Indication: AMYLOIDOSIS
     Route: 065
  5. DEXAMETHASONE [Suspect]
     Indication: AMYLOIDOSIS
     Route: 065
  6. CYCLOPHOSPHAMIDE [Concomitant]
     Indication: AMYLOIDOSIS
     Route: 065

REACTIONS (3)
  - MULTIPLE MYELOMA [None]
  - LEUKAEMIA PLASMACYTIC [None]
  - PANCYTOPENIA [None]
